FAERS Safety Report 4558609-0 (Version None)
Quarter: 2005Q1

REPORT INFORMATION
  Report Type: 
  Country: None (occurrence: None)
  Receive Date: 20050121
  Receipt Date: 20050117
  Transmission Date: 20050727
  Serious: Yes (Hospitalization)
  Sender: FDA-Public Use
  Company Number: GB-ROCHE-392844

PATIENT
  Age: 74 Year
  Sex: Male

DRUGS (1)
  1. NAPROXEN [Suspect]
     Indication: ARTHRITIS
     Route: 048
     Dates: start: 20000615, end: 20040615

REACTIONS (5)
  - ABDOMINAL PAIN [None]
  - EROSIVE DUODENITIS [None]
  - GASTRIC ULCER [None]
  - HELICOBACTER PYLORI IDENTIFICATION TEST POSITIVE [None]
  - OESOPHAGITIS [None]
